FAERS Safety Report 10693261 (Version 2)
Quarter: 2015Q1

REPORT INFORMATION
  Report Type: Spontaneous
  Country: US (occurrence: US)
  Receive Date: 20150106
  Receipt Date: 20150109
  Transmission Date: 20150720
  Serious: No
  Sender: FDA-Public Use
  Company Number: US-009507513-1501USA000853

PATIENT
  Weight: 29.71 kg

DRUGS (2)
  1. NEXPLANON [Suspect]
     Active Substance: ETONOGESTREL
     Dosage: 1 ROD EVERY THREE YEARS
     Route: 059
     Dates: start: 20140228, end: 20141223
  2. NEXPLANON [Suspect]
     Active Substance: ETONOGESTREL
     Dosage: 1 ROD EVERY THREE YEARS
     Route: 059
     Dates: start: 20141223

REACTIONS (3)
  - Product quality issue [Unknown]
  - Device breakage [Recovered/Resolved]
  - No adverse event [Unknown]
